FAERS Safety Report 9738810 (Version 2)
Quarter: 2014Q1

REPORT INFORMATION
  Report Type: Spontaneous
  Country: US (occurrence: US)
  Receive Date: 20131209
  Receipt Date: 20140121
  Transmission Date: 20141002
  Serious: No
  Sender: FDA-Public Use
  Company Number: US-PFIZER INC-2013349899

PATIENT
  Age: 55 Year
  Sex: Female
  Weight: 104.31 kg

DRUGS (3)
  1. CHANTIX [Suspect]
     Indication: SMOKING CESSATION THERAPY
     Dosage: 0.5 MG, 1X/DAY
     Route: 048
     Dates: start: 20131125, end: 2013
  2. CHANTIX [Suspect]
     Dosage: 1 MG, 2X/DAY
     Route: 048
     Dates: start: 2013
  3. CYMBALTA [Concomitant]
     Indication: BACK PAIN
     Dosage: UNK, DAILY

REACTIONS (10)
  - Dry mouth [Unknown]
  - Thirst [Unknown]
  - Insomnia [Unknown]
  - Disturbance in attention [Unknown]
  - Drug intolerance [Unknown]
  - Nausea [Unknown]
  - Abnormal dreams [Unknown]
  - Pollakiuria [Unknown]
  - Feeling abnormal [Unknown]
  - Fatigue [Unknown]
